FAERS Safety Report 4921167-2 (Version None)
Quarter: 2006Q1

REPORT INFORMATION
  Report Type: 
  Country: None (occurrence: None)
  Receive Date: 20060217
  Receipt Date: 20060202
  Transmission Date: 20060701
  Serious: Yes (Hospitalization, Other)
  Sender: FDA-Public Use
  Company Number: 2005-02408

PATIENT
  Age: 64 Year
  Sex: Female
  Weight: 68 kg

DRUGS (8)
  1. VELCADE [Suspect]
     Indication: MULTIPLE MYELOMA
     Dosage: 1.20 MG/M2, SINGLE, INTRAVENOUS
     Route: 042
     Dates: start: 20051115, end: 20051115
  2. MIST (MORPHINE SULFATE) [Concomitant]
  3. NEXIUM [Concomitant]
  4. LEVOTHYROXINE SODIUM [Concomitant]
  5. BELOC-ZOC MITE (METOPROLOL SUCCINATE) [Concomitant]
  6. RAMIPRIL [Concomitant]
  7. AQUAPHORIL (XIPAMIDE) [Concomitant]
  8. ALDACTONE FOR INJECTOIN (POTASSIUM CANRENOATE) [Concomitant]

REACTIONS (9)
  - ARRHYTHMIA [None]
  - BRONCHOSPASM [None]
  - COUGH [None]
  - DYSPNOEA [None]
  - HYPERSENSITIVITY [None]
  - PALPITATIONS [None]
  - PYREXIA [None]
  - TACHYCARDIA [None]
  - WHEEZING [None]
